FAERS Safety Report 10926387 (Version 2)
Quarter: 2015Q2

REPORT INFORMATION
  Report Type: Spontaneous
  Country: US (occurrence: US)
  Receive Date: 20150318
  Receipt Date: 20150409
  Transmission Date: 20150821
  Serious: Yes (Hospitalization, Other)
  Sender: FDA-Public Use
  Company Number: US-ASTRAZENECA-2015SE23403

PATIENT
  Sex: Male
  Weight: 117 kg

DRUGS (7)
  1. CHEMOTHERAPY [Suspect]
     Active Substance: UNSPECIFIED INGREDIENT
  2. METOPROLOL [Suspect]
     Active Substance: METOPROLOL
     Route: 065
  3. PREDNISONE. [Concomitant]
     Active Substance: PREDNISONE
  4. LISINOPRIL. [Suspect]
     Active Substance: LISINOPRIL
     Indication: BLOOD PRESSURE SYSTOLIC DECREASED
     Route: 048
  5. ASA [Concomitant]
     Active Substance: ASPIRIN
  6. ALBUTEROL. [Concomitant]
     Active Substance: ALBUTEROL
  7. CRESTOR [Suspect]
     Active Substance: ROSUVASTATIN CALCIUM
     Indication: HYPERLIPIDAEMIA
     Route: 048
     Dates: start: 20130705

REACTIONS (4)
  - Pancytopenia [Unknown]
  - Blood pressure systolic decreased [Unknown]
  - Pneumonia [Unknown]
  - Non-small cell lung cancer metastatic [Unknown]
